FAERS Safety Report 10511951 (Version 1)
Quarter: 2014Q4

REPORT INFORMATION
  Report Type: Spontaneous
  Country: JP (occurrence: JP)
  Receive Date: 20141010
  Receipt Date: 20141010
  Transmission Date: 20150528
  Serious: Yes (Hospitalization)
  Sender: FDA-Public Use
  Company Number: JP-BAYER-2014-147561

PATIENT
  Age: 72 Year
  Sex: Male

DRUGS (3)
  1. NEXAVAR [Suspect]
     Active Substance: SORAFENIB
     Indication: HEPATOCELLULAR CARCINOMA
     Dosage: DAILY DOSE 400 MG
     Route: 048
     Dates: start: 20140724, end: 20140904
  2. URSO [Concomitant]
     Active Substance: URSODIOL
     Route: 048
  3. LIVACT [Concomitant]
     Active Substance: AMINO ACIDS
     Route: 048

REACTIONS (2)
  - Liver abscess [Recovered/Resolved]
  - Splenic abscess [Recovered/Resolved]

NARRATIVE: CASE EVENT DATE: 20140904
